FAERS Safety Report 22084471 (Version 1)
Quarter: 2023Q1

REPORT INFORMATION
  Report Type: Spontaneous
  Country: US (occurrence: None)
  Receive Date: 20230309
  Receipt Date: 20230309
  Transmission Date: 20230418
  Serious: Yes (Life-Threatening, Other)
  Sender: FDA-Public Use
  Company Number: None

PATIENT
  Age: 39 Year
  Sex: Female
  Weight: 103.5 kg

DRUGS (4)
  1. OZEMPIC [Suspect]
     Active Substance: SEMAGLUTIDE
     Indication: Weight decreased
     Dosage: OTHER QUANTITY : 1 INJECTION(S);?OTHER FREQUENCY : ONCE A WEEK;?
     Route: 058
     Dates: start: 20230121, end: 20230128
  2. IBUPROFEN [Concomitant]
     Active Substance: IBUPROFEN
  3. VITAMIN D [Concomitant]
     Active Substance: VITAMIN D NOS
  4. MAGNESIUM [Concomitant]
     Active Substance: MAGNESIUM

REACTIONS (27)
  - Nausea [None]
  - Diarrhoea [None]
  - Therapy cessation [None]
  - Panic attack [None]
  - Burning sensation [None]
  - Insomnia [None]
  - Anxiety [None]
  - Depressed mood [None]
  - Decreased appetite [None]
  - Vision blurred [None]
  - Asthenia [None]
  - Irritability [None]
  - Abdominal distension [None]
  - Dyspepsia [None]
  - Abdominal pain upper [None]
  - Chills [None]
  - Cold sweat [None]
  - Confusional state [None]
  - Chromaturia [None]
  - Dizziness [None]
  - Heart rate increased [None]
  - Dyspnoea [None]
  - Disturbance in attention [None]
  - Taste disorder [None]
  - Product prescribing issue [None]
  - Product use issue [None]
  - Treatment noncompliance [None]

NARRATIVE: CASE EVENT DATE: 20230213
